FAERS Safety Report 23388049 (Version 3)
Quarter: 2024Q2

REPORT INFORMATION
  Report Type: Report from Study
  Country: EG (occurrence: EG)
  Receive Date: 20240110
  Receipt Date: 20240606
  Transmission Date: 20240715
  Serious: Yes (Disabling, Other)
  Sender: FDA-Public Use
  Company Number: EG-002147023-NVSC2023EG278614

PATIENT
  Age: 38 Year
  Sex: Female
  Weight: 73 kg

DRUGS (12)
  1. GILENYA [Suspect]
     Active Substance: FINGOLIMOD HYDROCHLORIDE
     Indication: Multiple sclerosis
     Dosage: UNK
     Route: 048
     Dates: start: 2018, end: 202003
  2. MAYZENT [Suspect]
     Active Substance: SIPONIMOD
     Indication: Multiple sclerosis
     Dosage: 0.5 DOSAGE FORM, QD (2 MG)
     Route: 048
     Dates: start: 202301
  3. MAYZENT [Suspect]
     Active Substance: SIPONIMOD
     Dosage: 2 MG, QD
     Route: 048
  4. MAYZENT [Suspect]
     Active Substance: SIPONIMOD
     Dosage: ONE TABLET, QOD
     Route: 048
     Dates: start: 202306, end: 202310
  5. MAYZENT [Suspect]
     Active Substance: SIPONIMOD
     Dosage: ONE TABLET, QD
     Route: 048
     Dates: start: 202310
  6. LUSTRAL [Concomitant]
     Active Substance: SERTRALINE HYDROCHLORIDE
     Indication: Depression
     Dosage: 1 TIME PER DAY UPON HER WORDS
     Route: 065
     Dates: start: 2022
  7. .ALPHA.-LIPOIC ACID [Concomitant]
     Active Substance: .ALPHA.-LIPOIC ACID
     Indication: Hypovitaminosis
     Dosage: 2 TIMES PER DAY UPON HER WORDS
     Route: 065
     Dates: start: 2022
  8. AMANTADINE SULFATE [Concomitant]
     Active Substance: AMANTADINE SULFATE
     Indication: Tremor
     Dosage: 2 TIMES PER DAY UPON HER WORDS
     Route: 065
     Dates: start: 2022
  9. GABAPENTIN [Concomitant]
     Active Substance: GABAPENTIN
     Indication: Hypoaesthesia
     Dosage: 1 DOSAGE FORM, QD
     Route: 065
     Dates: start: 202310
  10. OMEGA 3 [Concomitant]
     Active Substance: CAPSAICIN
     Indication: Hypovitaminosis
     Dosage: 1 TIME PER DAY UPON HER WORDS
     Route: 065
     Dates: start: 2022
  11. GAPTIN [Concomitant]
     Indication: Hypoaesthesia
     Dosage: 1 DOSAGE FORM, QD (2 TIMES PER DAY UPON HER WORDS)
     Route: 065
     Dates: start: 2022
  12. BENFOTIAMINE\CYANOCOBALAMIN\PYRIDOXINE HYDROCHLORIDE [Concomitant]
     Active Substance: BENFOTIAMINE\CYANOCOBALAMIN\PYRIDOXINE HYDROCHLORIDE
     Indication: Nerve injury
     Dosage: 1 DOSAGE FORM, QD
     Route: 048
     Dates: start: 202310

REACTIONS (13)
  - Vision blurred [Not Recovered/Not Resolved]
  - Fatigue [Not Recovered/Not Resolved]
  - Memory impairment [Not Recovered/Not Resolved]
  - Multiple sclerosis [Not Recovered/Not Resolved]
  - Limb discomfort [Not Recovered/Not Resolved]
  - COVID-19 [Unknown]
  - Dizziness [Not Recovered/Not Resolved]
  - Headache [Not Recovered/Not Resolved]
  - Extra dose administered [Unknown]
  - Intentional product misuse [Unknown]
  - Product dispensing issue [Unknown]
  - Off label use [Unknown]
  - Drug ineffective [Not Recovered/Not Resolved]

NARRATIVE: CASE EVENT DATE: 20230101
